FAERS Safety Report 5922472-3 (Version None)
Quarter: 2008Q4

REPORT INFORMATION
  Report Type: 
  Country: None (occurrence: None)
  Receive Date: 20081017
  Receipt Date: 20081007
  Transmission Date: 20090506
  Serious: Yes (Other)
  Sender: FDA-Public Use
  Company Number: ES-JNJFOC-20081002582

PATIENT
  Age: 32 Year
  Sex: Male

DRUGS (1)
  1. TOPAMAX [Suspect]
     Indication: ADJUSTMENT DISORDER WITH MIXED ANXIETY AND DEPRESSED MOOD
     Route: 065

REACTIONS (2)
  - HALLUCINATION, VISUAL [None]
  - MUSCLE RIGIDITY [None]
